FAERS Safety Report 6179595-6 (Version None)
Quarter: 2009Q2

REPORT INFORMATION
  Report Type: 
  Country: None (occurrence: None)
  Receive Date: 20090501
  Receipt Date: 20090501
  Transmission Date: 20091009
  Serious: Yes (Death)
  Sender: FDA-Public Use
  Company Number: None

PATIENT
  Age: 52 Year
  Sex: Female
  Weight: 43.0917 kg

DRUGS (1)
  1. EFFEXOR XR [Suspect]
     Indication: BIPOLAR DISORDER
     Dosage: 225MG. EVERY MORNING PO
     Route: 048
     Dates: start: 20080910, end: 20081005

REACTIONS (1)
  - THERAPEUTIC AGENT TOXICITY [None]
